FAERS Safety Report 10419148 (Version 1)
Quarter: 2014Q2

REPORT INFORMATION
  Report Type: Spontaneous
  Country: US (occurrence: None)
  Receive Date: 20140617
  Receipt Date: 20140617
  Transmission Date: 20141212
  Serious: Yes (Hospitalization)
  Sender: FDA-Public Use
  Company Number: 1244131

PATIENT
  Sex: 0

DRUGS (1)
  1. ACTERMA 5% TWO INFUSION DOSES [Suspect]
     Indication: RHEUMATOID ARTHRITIS

REACTIONS (1)
  - Rash [None]
